FAERS Safety Report 10174188 (Version 1)
Quarter: 2014Q2

REPORT INFORMATION
  Report Type: Spontaneous
  Country: US (occurrence: None)
  Receive Date: 20140514
  Receipt Date: 20140514
  Transmission Date: 20141212
  Serious: Yes (Life-Threatening, Hospitalization)
  Sender: FDA-Public Use
  Company Number: None

PATIENT
  Age: 69 Year
  Sex: Male
  Weight: 79.38 kg

DRUGS (1)
  1. XARELTO [Suspect]

REACTIONS (6)
  - Influenza like illness [None]
  - Gastroenteritis viral [None]
  - Diarrhoea [None]
  - Nausea [None]
  - Haematemesis [None]
  - Large intestinal haemorrhage [None]
